FAERS Safety Report 7118194-6 (Version None)
Quarter: 2010Q4

REPORT INFORMATION
  Report Type: 
  Country: None (occurrence: None)
  Receive Date: 20101118
  Receipt Date: 20101118
  Transmission Date: 20110411
  Serious: No
  Sender: FDA-Public Use
  Company Number: None

PATIENT
  Age: 58 Year
  Sex: Female
  Weight: 52.6173 kg

DRUGS (1)
  1. BONIVA [Suspect]
     Indication: OSTEOPOROSIS
     Dosage: 150 MG ONCE A MONTH
     Dates: start: 20101104, end: 20101117

REACTIONS (5)
  - ARTHRALGIA [None]
  - BACK PAIN [None]
  - DYSSTASIA [None]
  - MOVEMENT DISORDER [None]
  - MYALGIA [None]
